FAERS Safety Report 8012203-8 (Version None)
Quarter: 2011Q4

REPORT INFORMATION
  Report Type: 
  Country: None (occurrence: None)
  Receive Date: 20111228
  Receipt Date: 20111223
  Transmission Date: 20120403
  Serious: Yes (Hospitalization)
  Sender: FDA-Public Use
  Company Number: GXKR2011DE003673

PATIENT

DRUGS (3)
  1. DEXAMETHASONE [Suspect]
     Indication: PLASMACYTOMA
     Dosage: 40 MG, UNK
     Route: 042
     Dates: start: 20100720, end: 20100808
  2. DOXORUBICIN HCL [Suspect]
     Indication: PLASMACYTOMA
     Dosage: 18 MG, UNK
     Route: 042
     Dates: start: 20100720
  3. BORTEZOMIB [Suspect]
     Indication: PLASMACYTOMA
     Dosage: 2.6 MG, UNK
     Route: 042
     Dates: start: 20100720

REACTIONS (2)
  - PULMONARY EMBOLISM [None]
  - PNEUMONIA [None]
